FAERS Safety Report 10515701 (Version 1)
Quarter: 2014Q4

REPORT INFORMATION
  Report Type: Spontaneous
  Country: US (occurrence: None)
  Receive Date: 20141001
  Receipt Date: 20141001
  Transmission Date: 20150528
  Serious: Yes (Other)
  Sender: FDA-Public Use
  Company Number: 1000069077

PATIENT
  Age: 32 Year
  Sex: Female
  Weight: 50 kg

DRUGS (6)
  1. BUSPIRONE (BUSPIRONE) (15 MILLIGRAM) (BUSPIRONE) [Concomitant]
  2. SAPHRIS [Suspect]
     Active Substance: ASENAPINE MALEATE
     Indication: BIPOLAR DISORDER
     Dosage: (5 MG, UNKNOWN)
     Route: 048
     Dates: start: 20111216, end: 20111219
  3. KLONOPIN [Concomitant]
     Active Substance: CLONAZEPAM
  4. SOMA [Concomitant]
     Active Substance: CARISOPRODOL
  5. OXYCODONE (OXYCODONE) (OXYCODONE) [Concomitant]
     Active Substance: OXYCODONE
  6. LAMICTAL [Concomitant]
     Active Substance: LAMOTRIGINE

REACTIONS (2)
  - Somnolence [None]
  - Dystonia [None]
